FAERS Safety Report 23690224 (Version 2)
Quarter: 2024Q2

REPORT INFORMATION
  Report Type: Spontaneous
  Country: FR (occurrence: FR)
  Receive Date: 20240401
  Receipt Date: 20240408
  Transmission Date: 20240715
  Serious: Yes (Other)
  Sender: FDA-Public Use
  Company Number: FR-009507513-2203FRA000075

PATIENT
  Age: 69 Year
  Sex: Male
  Weight: 84 kg

DRUGS (9)
  1. HYDROCHLOROTHIAZIDE\LOSARTAN POTASSIUM [Suspect]
     Active Substance: HYDROCHLOROTHIAZIDE\LOSARTAN POTASSIUM
     Indication: Hypertension
     Dosage: 100 MILLIGRAM
     Route: 048
  2. PREDNISONE [Suspect]
     Active Substance: PREDNISONE
     Indication: Product used for unknown indication
     Dosage: FLUCTUATING DOSE
     Route: 048
     Dates: start: 2020
  3. POTASSIUM CHLORIDE [Suspect]
     Active Substance: POTASSIUM CHLORIDE
     Indication: Hypokalaemia
     Dosage: UNK
     Route: 048
     Dates: start: 2021
  4. KEYTRUDA [Suspect]
     Active Substance: PEMBROLIZUMAB
     Indication: Bronchial carcinoma
     Dosage: 200 MILLIGRAM, CYCLICAL
     Route: 042
     Dates: end: 20220203
  5. LERCANIDIPINE [Suspect]
     Active Substance: LERCANIDIPINE
     Indication: Hypertension
     Dosage: 10 MILLIGRAM
     Route: 048
  6. MODERNA COVID-19 VACCINE [Suspect]
     Active Substance: ELASOMERAN
     Indication: COVID-19 immunisation
     Dosage: 1 DOSAGE FORM, 1 TOTAL
     Route: 030
     Dates: start: 20220119, end: 20221119
  7. COMIRNATY (TOZINAMERAN) [Suspect]
     Active Substance: TOZINAMERAN
     Indication: Product used for unknown indication
     Dosage: UNK
     Route: 065
     Dates: start: 20210309
  8. COMIRNATY (TOZINAMERAN) [Suspect]
     Active Substance: TOZINAMERAN
     Dosage: UNK
     Route: 065
     Dates: start: 20210805
  9. HYDROCHLOROTHIAZIDE\LOSARTAN POTASSIUM [Suspect]
     Active Substance: HYDROCHLOROTHIAZIDE\LOSARTAN POTASSIUM
     Indication: Hypertension
     Dosage: UNK
     Route: 048

REACTIONS (2)
  - Retinal vein occlusion [Not Recovered/Not Resolved]
  - Blood potassium abnormal [Unknown]

NARRATIVE: CASE EVENT DATE: 20220201
